FAERS Safety Report 8195536-4 (Version None)
Quarter: 2012Q1

REPORT INFORMATION
  Report Type: 
  Country: None (occurrence: None)
  Receive Date: 20120308
  Receipt Date: 20120305
  Transmission Date: 20120608
  Serious: Yes (Other)
  Sender: FDA-Public Use
  Company Number: PHHY2012BD019233

PATIENT
  Sex: Female

DRUGS (1)
  1. ZOLEDRONOC ACID [Suspect]
     Indication: OSTEOPOROSIS
     Route: 042

REACTIONS (5)
  - PYREXIA [None]
  - ERYTHEMA [None]
  - RASH [None]
  - JOINT STIFFNESS [None]
  - BONE PAIN [None]
